FAERS Safety Report 17480170 (Version 2)
Quarter: 2021Q2

REPORT INFORMATION
  Report Type: Spontaneous
  Country: CA (occurrence: CA)
  Receive Date: 20200228
  Receipt Date: 20210408
  Transmission Date: 20210716
  Serious: Yes (Other)
  Sender: FDA-Public Use
  Company Number: CA-SAMSUNG BIOEPIS-SB-2020-06428

PATIENT
  Age: 62 Year
  Sex: Female

DRUGS (26)
  1. ARAVA [Suspect]
     Active Substance: LEFLUNOMIDE
     Indication: PRODUCT USED FOR UNKNOWN INDICATION
     Route: 048
  2. ARAVA [Suspect]
     Active Substance: LEFLUNOMIDE
     Route: 048
  3. GOLIMUMAB [Suspect]
     Active Substance: GOLIMUMAB
     Indication: PRODUCT USED FOR UNKNOWN INDICATION
     Route: 058
  4. HUMIRA [Suspect]
     Active Substance: ADALIMUMAB
     Dosage: SOLUTION SUBCUTANEOUS
     Route: 058
  5. METHOTREXATE. [Suspect]
     Active Substance: METHOTREXATE
     Route: 065
  6. ERELZI [Suspect]
     Active Substance: ETANERCEPT-SZZS
     Indication: PRODUCT USED FOR UNKNOWN INDICATION
     Route: 058
  7. ARAVA [Suspect]
     Active Substance: LEFLUNOMIDE
     Route: 048
  8. COSENTYX [Suspect]
     Active Substance: SECUKINUMAB
     Indication: PRODUCT USED FOR UNKNOWN INDICATION
     Route: 058
  9. HUMIRA [Suspect]
     Active Substance: ADALIMUMAB
     Indication: PSORIATIC ARTHROPATHY
     Dosage: SOLUTION SUBCUTANEOUS
     Route: 058
  10. METHADONE [Suspect]
     Active Substance: METHADONE HYDROCHLORIDE
     Route: 048
  11. SULFASALAZINE. [Suspect]
     Active Substance: SULFASALAZINE
     Indication: PRODUCT USED FOR UNKNOWN INDICATION
     Route: 048
  12. INFLIXIMAB [Suspect]
     Active Substance: INFLIXIMAB
     Route: 042
  13. COSENTYX [Suspect]
     Active Substance: SECUKINUMAB
     Route: 058
  14. PREDNISONE. [Suspect]
     Active Substance: PREDNISONE
     Indication: PRODUCT USED FOR UNKNOWN INDICATION
     Route: 065
  15. ETANERCEPT [Suspect]
     Active Substance: ETANERCEPT
     Indication: PRODUCT USED FOR UNKNOWN INDICATION
     Route: 058
  16. COSENTYX [Suspect]
     Active Substance: SECUKINUMAB
     Route: 058
  17. INFLIXIMAB [Suspect]
     Active Substance: INFLIXIMAB
     Indication: PRODUCT USED FOR UNKNOWN INDICATION
     Route: 042
  18. CYMBALTA [Suspect]
     Active Substance: DULOXETINE HYDROCHLORIDE
     Indication: PRODUCT USED FOR UNKNOWN INDICATION
     Route: 048
  19. METHADONE [Suspect]
     Active Substance: METHADONE HYDROCHLORIDE
     Route: 048
  20. OTEZLA [Suspect]
     Active Substance: APREMILAST
     Indication: PRODUCT USED FOR UNKNOWN INDICATION
     Route: 048
  21. ETANERCEPT [Suspect]
     Active Substance: ETANERCEPT
     Route: 058
  22. HUMIRA [Suspect]
     Active Substance: ADALIMUMAB
     Dosage: SOLUTION SUBCUTANEOUS
     Route: 058
  23. LYRICA [Suspect]
     Active Substance: PREGABALIN
     Indication: PRODUCT USED FOR UNKNOWN INDICATION
     Route: 048
  24. METHADONE [Suspect]
     Active Substance: METHADONE HYDROCHLORIDE
     Indication: PRODUCT USED FOR UNKNOWN INDICATION
     Route: 048
  25. METHOTREXATE. [Suspect]
     Active Substance: METHOTREXATE
     Indication: PRODUCT USED FOR UNKNOWN INDICATION
     Route: 065
  26. ERELZI [Suspect]
     Active Substance: ETANERCEPT-SZZS
     Route: 058

REACTIONS (17)
  - Affective disorder [Unknown]
  - Joint swelling [Unknown]
  - Mood swings [Unknown]
  - Nausea [Unknown]
  - Wheezing [Unknown]
  - Diarrhoea [Unknown]
  - Emotional distress [Unknown]
  - Dyspnoea [Unknown]
  - Decreased appetite [Unknown]
  - Suicidal ideation [Unknown]
  - Product use issue [Unknown]
  - Arthralgia [Unknown]
  - Condition aggravated [Unknown]
  - Drug ineffective [Unknown]
  - Crying [Unknown]
  - Headache [Unknown]
  - Musculoskeletal stiffness [Unknown]
